FAERS Safety Report 9919583 (Version 1)
Quarter: 2014Q1

REPORT INFORMATION
  Report Type: Report from Study
  Country: AU (occurrence: AU)
  Receive Date: 20140224
  Receipt Date: 20140224
  Transmission Date: 20141002
  Serious: Yes (Disabling)
  Sender: FDA-Public Use
  Company Number: AU-US-EMD SERONO, INC.-7258374

PATIENT
  Age: 48 Year
  Sex: Female

DRUGS (1)
  1. REBIF [Suspect]
     Indication: PRODUCT USED FOR UNKNOWN INDICATION
     Dates: start: 2009, end: 2009

REACTIONS (8)
  - Asthenia [Recovered/Resolved]
  - Weight increased [Recovered/Resolved]
  - Head discomfort [Recovered/Resolved]
  - Burning sensation [Recovered/Resolved]
  - Neck pain [Recovered/Resolved]
  - Influenza like illness [Recovered/Resolved]
  - Injection site bruising [Recovered/Resolved]
  - Wrong technique in drug usage process [Recovered/Resolved]
